FAERS Safety Report 20952548 (Version 4)
Quarter: 2022Q3

REPORT INFORMATION
  Report Type: Report from Study
  Country: EC (occurrence: EC)
  Receive Date: 20220613
  Receipt Date: 20220804
  Transmission Date: 20221027
  Serious: Yes (Death, Hospitalization, Other)
  Sender: FDA-Public Use
  Company Number: EC-BAYER-2022A079854

PATIENT
  Age: 72 Year
  Sex: Female

DRUGS (3)
  1. NEXAVAR [Suspect]
     Active Substance: SORAFENIB
     Indication: Hepatocellular carcinoma
     Dosage: DAILY DOSE 800 MG
     Route: 048
     Dates: start: 20211101, end: 20220723
  2. HYDRATION VITAMIN [Concomitant]
     Dosage: 1000 CC ONCE A WEEK FOR 4 WEEKS
  3. FUROSEMIDE [Concomitant]
     Active Substance: FUROSEMIDE
     Dosage: 20 MG, QD
     Dates: start: 20220624

REACTIONS (7)
  - Hepatocellular carcinoma [Fatal]
  - Abdominal distension [None]
  - Underweight [Recovering/Resolving]
  - Diarrhoea [Recovering/Resolving]
  - Decreased appetite [Recovered/Resolved]
  - Pyrexia [Recovering/Resolving]
  - Dyspepsia [Recovered/Resolved]

NARRATIVE: CASE EVENT DATE: 20220508
